FAERS Safety Report 10728247 (Version 2)
Quarter: 2015Q1

REPORT INFORMATION
  Report Type: Report from Study
  Country: DE (occurrence: DE)
  Receive Date: 20150121
  Receipt Date: 20150206
  Transmission Date: 20150721
  Serious: Yes (Hospitalization)
  Sender: FDA-Public Use
  Company Number: DE-ASTRAZENECA-2015SE04342

PATIENT
  Age: 27937 Day
  Sex: Male

DRUGS (22)
  1. ZD6474 [Suspect]
     Active Substance: VANDETANIB
     Indication: MEDULLARY THYROID CANCER
     Route: 048
     Dates: start: 20140219, end: 20140225
  2. ZD6474 [Suspect]
     Active Substance: VANDETANIB
     Indication: MEDULLARY THYROID CANCER
     Route: 048
     Dates: start: 20140304
  3. PANTOZOL [Concomitant]
     Active Substance: PANTOPRAZOLE SODIUM
     Indication: GASTROOESOPHAGEAL REFLUX DISEASE
     Route: 048
     Dates: start: 20130316
  4. TANNOLACT [Concomitant]
     Indication: PARONYCHIA
     Route: 061
     Dates: start: 20130528
  5. TRICLOSAN. [Concomitant]
     Active Substance: TRICLOSAN
     Indication: DERMATITIS ACNEIFORM
     Route: 061
     Dates: start: 20130806
  6. EUTHYROX [Concomitant]
     Active Substance: LEVOTHYROXINE SODIUM
     Indication: HORMONE THERAPY
     Route: 048
     Dates: start: 20120912, end: 20121218
  7. ZD6474 [Suspect]
     Active Substance: VANDETANIB
     Indication: MEDULLARY THYROID CANCER
     Route: 048
     Dates: start: 20071214, end: 20100326
  8. ZD6474 [Suspect]
     Active Substance: VANDETANIB
     Indication: MEDULLARY THYROID CANCER
     Route: 048
     Dates: start: 20130620, end: 20140210
  9. EUTHYROX [Concomitant]
     Active Substance: LEVOTHYROXINE SODIUM
     Indication: HORMONE THERAPY
     Route: 048
     Dates: start: 20121219
  10. UNGUENTUM EMULSIFICANS AQUOSUM [Concomitant]
     Indication: DERMATITIS ACNEIFORM
     Route: 061
     Dates: start: 20130604
  11. ZD6474 [Suspect]
     Active Substance: VANDETANIB
     Indication: MEDULLARY THYROID CANCER
     Route: 048
     Dates: start: 20100416, end: 20111124
  12. EUTHYROX [Concomitant]
     Active Substance: LEVOTHYROXINE SODIUM
     Indication: HORMONE THERAPY
     Route: 048
     Dates: start: 20101110
  13. ISOPTO-MAX [Concomitant]
     Indication: CATARACT
     Dates: start: 20140211
  14. ZD6474 [Suspect]
     Active Substance: VANDETANIB
     Indication: MEDULLARY THYROID CANCER
     Dosage: BLINDED STUDY THERAPY
     Route: 048
     Dates: start: 20070424, end: 20071114
  15. EUTHYROX [Concomitant]
     Active Substance: LEVOTHYROXINE SODIUM
     Indication: HORMONE THERAPY
     Route: 048
     Dates: start: 20090720, end: 20101109
  16. DIOVAN [Concomitant]
     Active Substance: VALSARTAN
     Indication: HYPERTENSION
     Route: 048
     Dates: start: 20140115
  17. METOPROLOL SUCCINAT [Concomitant]
     Indication: HYPERTENSION
     Route: 048
     Dates: start: 20140413
  18. EUTHYROX [Concomitant]
     Active Substance: LEVOTHYROXINE SODIUM
     Indication: HORMONE THERAPY
     Route: 048
     Dates: end: 20071108
  19. VITAMIN C [Concomitant]
     Active Substance: ASCORBIC ACID
     Indication: VITAMIN SUPPLEMENTATION
     Route: 048
     Dates: start: 20100818
  20. AMLODIPIN [Concomitant]
     Active Substance: AMLODIPINE BESYLATE
     Indication: HYPERTENSION
     Route: 048
     Dates: start: 20140115
  21. ZD6474 [Suspect]
     Active Substance: VANDETANIB
     Indication: MEDULLARY THYROID CANCER
     Route: 048
     Dates: start: 20111223, end: 20130521
  22. EUTHYROX [Concomitant]
     Active Substance: LEVOTHYROXINE SODIUM
     Indication: HORMONE THERAPY
     Route: 048
     Dates: start: 20071109, end: 20090719

REACTIONS (1)
  - Squamous cell carcinoma [Recovered/Resolved]

NARRATIVE: CASE EVENT DATE: 20150112
